FAERS Safety Report 20440502 (Version 1)
Quarter: 2022Q1

REPORT INFORMATION
  Report Type: Spontaneous
  Country: US (occurrence: None)
  Receive Date: 20220207
  Receipt Date: 20220207
  Transmission Date: 20220423
  Serious: No
  Sender: FDA-Public Use
  Company Number: None

PATIENT
  Sex: Female

DRUGS (2)
  1. AMBRISENTAN [Suspect]
     Active Substance: AMBRISENTAN
     Indication: Pulmonary arterial hypertension
     Dosage: TAKE 1 TABLET BY MOUTH EVERY DAY FOR 4 WEEKS, THEN TAKE 2 TABLETS BY MOUTH DAILY
     Route: 048
     Dates: start: 20220113
  2. UPTRAVI TAB [Concomitant]

REACTIONS (2)
  - Headache [None]
  - Myalgia [None]
